FAERS Safety Report 7535592-7 (Version None)
Quarter: 2011Q2

REPORT INFORMATION
  Report Type: 
  Country: None (occurrence: None)
  Receive Date: 20110601
  Receipt Date: 20110524
  Transmission Date: 20111010
  Serious: Yes (Other)
  Sender: FDA-Public Use
  Company Number: 2011SP024105

PATIENT
  Age: 30 Year
  Sex: Female
  Weight: 53 kg

DRUGS (1)
  1. NUVARING [Suspect]
     Indication: CONTRACEPTION
     Dosage: QM;VAG
     Route: 067
     Dates: start: 20110523

REACTIONS (11)
  - IRRITABILITY [None]
  - MALAISE [None]
  - ENDOMETRIAL HYPERTROPHY [None]
  - UTERINE LEIOMYOMA [None]
  - DYSGEUSIA [None]
  - UTERINE MALPOSITION [None]
  - OVARIAN DISORDER [None]
  - HEADACHE [None]
  - DIZZINESS [None]
  - NAUSEA [None]
  - ASTHENIA [None]
